FAERS Safety Report 9213130 (Version 2)
Quarter: 2013Q3

REPORT INFORMATION
  Report Type: Spontaneous
  Country: FR (occurrence: FR)
  Receive Date: 20130405
  Receipt Date: 20130709
  Transmission Date: 20140515
  Serious: Yes (Other)
  Sender: FDA-Public Use
  Company Number: FR-JNJFOC-20130317141

PATIENT
  Age: 24 Year
  Sex: Female
  Weight: 105 kg

DRUGS (7)
  1. REMICADE [Suspect]
     Indication: CROHN^S DISEASE
     Route: 042
     Dates: start: 201203
  2. REMICADE [Suspect]
     Indication: CROHN^S DISEASE
     Route: 042
     Dates: start: 201111
  3. REMICADE [Suspect]
     Indication: CROHN^S DISEASE
     Route: 042
     Dates: start: 20130415, end: 20130415
  4. XANAX [Suspect]
     Indication: INTENTIONAL DRUG MISUSE
     Dosage: INGESTION OF ONE BLISTER
     Route: 065
     Dates: start: 20130207
  5. IMUREL [Concomitant]
     Indication: CROHN^S DISEASE
     Route: 042
     Dates: start: 201111
  6. IMUREL [Concomitant]
     Indication: CROHN^S DISEASE
     Route: 042
     Dates: start: 2006
  7. IMUREL [Concomitant]
     Indication: CROHN^S DISEASE
     Route: 042
     Dates: start: 201203

REACTIONS (4)
  - Weight increased [Not Recovered/Not Resolved]
  - Depression [Not Recovered/Not Resolved]
  - Toxicity to various agents [Recovered/Resolved]
  - Feeding disorder [Unknown]
